FAERS Safety Report 6650396-5 (Version None)
Quarter: 2010Q1

REPORT INFORMATION
  Report Type: 
  Country: None (occurrence: None)
  Receive Date: 20100325
  Receipt Date: 20100312
  Transmission Date: 20100710
  Serious: Yes (Other)
  Sender: FDA-Public Use
  Company Number: GR-BAYER-201019303GPV

PATIENT
  Age: 41 Year
  Sex: Female

DRUGS (1)
  1. ASPIRIN [Suspect]
     Indication: HEADACHE
     Dosage: TOOK UP TO 4G A DAY OF ASPIRIN DURING THE FIRST TRIMESTER
     Route: 048

REACTIONS (1)
  - CYCLOPIA [None]
